FAERS Safety Report 5399437-6 (Version None)
Quarter: 2007Q3

REPORT INFORMATION
  Report Type: 
  Country: None (occurrence: None)
  Receive Date: 20070727
  Receipt Date: 20070724
  Transmission Date: 20080115
  Serious: Yes (Other)
  Sender: FDA-Public Use
  Company Number: JP-BRISTOL-MYERS SQUIBB COMPANY-13859319

PATIENT
  Age: 55 Year
  Sex: Female

DRUGS (5)
  1. TAXOL [Suspect]
     Indication: UTERINE CANCER
     Route: 041
     Dates: start: 20070628, end: 20070628
  2. CARBOMERCK [Suspect]
     Indication: UTERINE CANCER
     Route: 041
     Dates: start: 20070628, end: 20070628
  3. DECADRON [Concomitant]
     Route: 041
     Dates: start: 20070628, end: 20070628
  4. RESTAMIN [Concomitant]
     Route: 048
     Dates: start: 20070628, end: 20070628
  5. KYTRIL [Concomitant]
     Route: 041
     Dates: start: 20070628, end: 20070628

REACTIONS (1)
  - FACE OEDEMA [None]
